FAERS Safety Report 23138889 (Version 1)
Quarter: 2023Q4

REPORT INFORMATION
  Report Type: Report from Study
  Country: US (occurrence: None)
  Receive Date: 20231102
  Receipt Date: 20231102
  Transmission Date: 20240110
  Serious: Yes (Other)
  Sender: FDA-Public Use
  Company Number: US-ROCHE-2422551

PATIENT
  Age: 70 Year
  Sex: Female
  Weight: 70.3 kg

DRUGS (24)
  1. FARICIMAB [Suspect]
     Active Substance: FARICIMAB
     Indication: Diabetic retinal oedema
     Dosage: DATE OF MOST RECENT DOSE OF FARICIMAB PRIOR TO SAE ONSET - 02/AUG/2019 AT 11:50
     Route: 050
     Dates: start: 20181120
  2. FISH OIL [Concomitant]
     Active Substance: FISH OIL
     Indication: Blood cholesterol increased
     Route: 048
     Dates: start: 2000
  3. LISINOPRIL [Concomitant]
     Active Substance: LISINOPRIL
     Indication: Hypertension
     Route: 048
     Dates: start: 2000
  4. VENTOLIN HFA [Concomitant]
     Active Substance: ALBUTEROL SULFATE
     Indication: Asthma
     Route: 055
     Dates: start: 2009
  5. ATORVASTATIN [Concomitant]
     Active Substance: ATORVASTATIN
     Indication: Blood cholesterol increased
     Route: 048
     Dates: start: 2000
  6. SINGULAIR [Concomitant]
     Active Substance: MONTELUKAST SODIUM
     Indication: Seasonal allergy
     Route: 048
     Dates: start: 2008
  7. VICTOZA [Concomitant]
     Active Substance: LIRAGLUTIDE
     Indication: Type 2 diabetes mellitus
     Route: 058
     Dates: start: 201805
  8. ASPIRIN [Concomitant]
     Active Substance: ASPIRIN
     Indication: Cardiovascular event prophylaxis
     Route: 048
     Dates: start: 200006
  9. COMBIGAN [Concomitant]
     Active Substance: BRIMONIDINE TARTRATE\TIMOLOL MALEATE
     Indication: Ocular hypertension
     Route: 047
     Dates: start: 20190802
  10. LOTEMAX SM [Concomitant]
     Active Substance: LOTEPREDNOL ETABONATE
     Indication: Uveitis
     Route: 047
     Dates: start: 20190823
  11. RHOPRESSA [Concomitant]
     Active Substance: NETARSUDIL MESYLATE
     Indication: Ocular hypertension
     Route: 047
     Dates: start: 20190823
  12. VALTREX [Concomitant]
     Active Substance: VALACYCLOVIR HYDROCHLORIDE
     Indication: Uveitis
     Route: 048
     Dates: start: 20190829
  13. CITALOPRAM [Concomitant]
     Active Substance: CITALOPRAM HYDROBROMIDE
     Indication: Depression
     Route: 048
     Dates: start: 20190909
  14. PREDNISOLONE ACETATE [Concomitant]
     Active Substance: PREDNISOLONE ACETATE
     Indication: Uveitis
     Route: 047
     Dates: start: 20190829
  15. ATROPINE [Concomitant]
     Active Substance: ATROPINE
     Indication: Uveitis
     Route: 047
     Dates: start: 20190829
  16. DIFLUCAN [Concomitant]
     Active Substance: FLUCONAZOLE
     Indication: Uveitis
     Route: 048
     Dates: start: 20190829
  17. VANCOMYCIN [Concomitant]
     Active Substance: VANCOMYCIN
     Indication: Uveitis
     Route: 050
     Dates: start: 20190829, end: 20190829
  18. CEFTAZIDIME [Concomitant]
     Active Substance: CEFTAZIDIME
     Indication: Uveitis
     Route: 050
     Dates: start: 20190829, end: 20190829
  19. CEFEPIME [Concomitant]
     Active Substance: CEFEPIME HYDROCHLORIDE
     Indication: Uveitis
     Route: 050
     Dates: start: 20190829, end: 20190829
  20. VORICONAZOLE [Concomitant]
     Active Substance: VORICONAZOLE
     Indication: Uveitis
     Route: 050
     Dates: start: 20190829, end: 20190829
  21. AMPHOTERICIN B [Concomitant]
     Active Substance: AMPHOTERICIN B
     Indication: Uveitis
     Route: 050
     Dates: start: 20190829, end: 20190829
  22. METHOTREXATE [Concomitant]
     Active Substance: METHOTREXATE
     Indication: Uveitis
     Route: 048
     Dates: start: 20191031
  23. FOLIC ACID [Concomitant]
     Active Substance: FOLIC ACID
     Route: 048
     Dates: start: 20191031
  24. ZOFRAN [Concomitant]
     Active Substance: ONDANSETRON HYDROCHLORIDE
     Route: 048
     Dates: start: 20191031

REACTIONS (1)
  - Noninfective chorioretinitis [Recovering/Resolving]

NARRATIVE: CASE EVENT DATE: 20190829
